FAERS Safety Report 9541934 (Version 1)
Quarter: 2013Q3

REPORT INFORMATION
  Report Type: Spontaneous
  Country: US (occurrence: None)
  Receive Date: 20130919
  Receipt Date: 20130919
  Transmission Date: 20140515
  Serious: Yes (Disabling, Other)
  Sender: FDA-Public Use
  Company Number: None

PATIENT
  Age: 19 Year
  Sex: Female
  Weight: 63.5 kg

DRUGS (1)
  1. BRETHINE [Suspect]
     Indication: PREMATURE LABOUR

REACTIONS (4)
  - Hypertension [None]
  - Heart rate increased [None]
  - Sick sinus syndrome [None]
  - Diabetes mellitus [None]
